FAERS Safety Report 9316450 (Version 1)
Quarter: 2013Q1

REPORT INFORMATION
  Report Type: Spontaneous
  Country: CH (occurrence: None)
  Receive Date: 20121109
  Receipt Date: 20121109
  Transmission Date: 20140127
  Serious: Yes (Life-Threatening, Other)
  Sender: FDA-Public Use
  Company Number: 2011S1000707

PATIENT
  Age: 61 Year
  Sex: Male
  Weight: 110 kg

DRUGS (5)
  1. CUBICIN (DAPTOMYCIN) [Suspect]
     Route: 042
     Dates: start: 20110830, end: 20110920
  2. AMOXICLAV /01000301/ [Concomitant]
  3. AUGMENTIN [Concomitant]
  4. RIFAMPICINE [Concomitant]
  5. LEVOFLOXACIN [Concomitant]

REACTIONS (4)
  - Eosinophilic pneumonia [None]
  - Acute pulmonary oedema [None]
  - No therapeutic response [None]
  - C-reactive protein increased [None]
